FAERS Safety Report 9005907 (Version 2)
Quarter: 2013Q1

REPORT INFORMATION
  Report Type: Spontaneous
  Country: IL (occurrence: IL)
  Receive Date: 20130109
  Receipt Date: 20130304
  Transmission Date: 20140127
  Serious: Yes (Death, Other)
  Sender: FDA-Public Use
  Company Number: IL-ELI_LILLY_AND_COMPANY-IL201301002843

PATIENT
  Sex: Female

DRUGS (9)
  1. FORTEO [Suspect]
     Dosage: 20 UG, QD
     Route: 058
     Dates: start: 20090515, end: 20121021
  2. EUTHYROX [Concomitant]
     Dosage: 100 UG, UNK
     Route: 048
  3. CALCIUM 600 + D [Concomitant]
  4. SLOW K [Concomitant]
     Dosage: 600 MG, UNK
     Route: 058
  5. BROTIZOLAM [Concomitant]
     Dosage: 0.25 MG, UNK
     Route: 048
  6. OMEPRAZOL [Concomitant]
     Dosage: 20 MG, UNK
     Route: 048
  7. AVILAC [Concomitant]
     Dosage: UNK
  8. CITALOPRAM [Concomitant]
     Dosage: 20 MG, UNK
     Route: 048
  9. PLAVIX [Concomitant]
     Dosage: 75 MG, UNK
     Route: 048

REACTIONS (8)
  - Cardiac failure acute [Fatal]
  - Metabolic cardiomyopathy [Fatal]
  - Urinary tract infection [Unknown]
  - Nutritional condition abnormal [Unknown]
  - Weight decreased [Unknown]
  - Protein total decreased [Unknown]
  - Cognitive disorder [Unknown]
  - Intentional drug misuse [Recovered/Resolved]
